FAERS Safety Report 7240821-3 (Version None)
Quarter: 2011Q1

REPORT INFORMATION
  Report Type: 
  Country: None (occurrence: None)
  Receive Date: 20110124
  Receipt Date: 20110114
  Transmission Date: 20110831
  Serious: Yes (Life-Threatening, Hospitalization)
  Sender: FDA-Public Use
  Company Number: US-JNJFOC-20101202480

PATIENT
  Sex: Female

DRUGS (13)
  1. VICODIN [Concomitant]
  2. LEVAQUIN [Concomitant]
  3. FOLATE [Concomitant]
  4. ATENOLOL [Concomitant]
  5. REMICADE [Suspect]
     Indication: RHEUMATOID ARTHRITIS
     Dosage: 12-OCT-2010 LAST INFUSION RECEIVED 341.8 MG
     Route: 042
  6. LISINOPRIL [Concomitant]
  7. RADIATION THERAPY NOS [Concomitant]
  8. PANTOPRAZOLE [Concomitant]
  9. VANCOMYCIN [Concomitant]
  10. CALCIUM [Concomitant]
  11. DECADRON [Concomitant]
  12. DOCUSATE [Concomitant]
  13. LEVETIRACETAM [Concomitant]

REACTIONS (7)
  - GASTRIC CANCER [None]
  - VIITH NERVE PARALYSIS [None]
  - VISION BLURRED [None]
  - FALL [None]
  - BRAIN NEOPLASM MALIGNANT [None]
  - LUNG CANCER METASTATIC [None]
  - MUSCLE TWITCHING [None]
